FAERS Safety Report 13766874 (Version 1)
Quarter: 2017Q3

REPORT INFORMATION
  Report Type: Spontaneous
  Country: US (occurrence: US)
  Receive Date: 20170718
  Receipt Date: 20170718
  Transmission Date: 20171127
  Serious: No
  Sender: FDA-Public Use
  Company Number: None

PATIENT
  Age: 59 Year
  Sex: Male
  Weight: 92.7 kg

DRUGS (3)
  1. LISINOPRIL. [Concomitant]
     Active Substance: LISINOPRIL
  2. SIMISTATIN [Concomitant]
  3. LEVAQUIN [Suspect]
     Active Substance: LEVOFLOXACIN
     Indication: PNEUMONIA
     Dosage: ?          OTHER STRENGTH:MG;QUANTITY:5 TABLET(S);?
     Dates: start: 20170603, end: 20170607

REACTIONS (10)
  - Pain in extremity [None]
  - Hypoaesthesia [None]
  - Disturbance in attention [None]
  - Dizziness [None]
  - Headache [None]
  - Asthenia [None]
  - Paraesthesia [None]
  - Fatigue [None]
  - Vision blurred [None]
  - Myalgia [None]

NARRATIVE: CASE EVENT DATE: 20170607
